FAERS Safety Report 4446277-8 (Version None)
Quarter: 2004Q3

REPORT INFORMATION
  Report Type: 
  Country: None (occurrence: None)
  Receive Date: 20040902
  Receipt Date: 20040823
  Transmission Date: 20050211
  Serious: Yes (Life-Threatening)
  Sender: FDA-Public Use
  Company Number: M2004-1164

PATIENT
  Age: 13 Year
  Sex: Male
  Weight: 48 kg

DRUGS (3)
  1. METRONIDAZOLE [Suspect]
     Indication: INFECTION
     Dosage: 500 MG DAILY, IV
     Route: 042
     Dates: start: 20040801
  2. CIPROFLOXACIN [Concomitant]
  3. CLINDAMYCIN [Concomitant]

REACTIONS (2)
  - HYPOTENSION [None]
  - PYREXIA [None]
